FAERS Safety Report 14909854 (Version 2)
Quarter: 2018Q2

REPORT INFORMATION
  Report Type: Spontaneous
  Country: US (occurrence: US)
  Receive Date: 20180517
  Receipt Date: 20180521
  Transmission Date: 20180711
  Serious: Yes (Other)
  Sender: FDA-Public Use
  Company Number: US-PFIZER INC-2018198497

PATIENT
  Age: 70 Year
  Sex: Male

DRUGS (1)
  1. DEPO-TESTOSTERONE [Suspect]
     Active Substance: TESTOSTERONE CYPIONATE
     Dosage: UNK, WEEKLY (50 MG OR ML/ EVERY 6 DAYS INSTEAD OF 7, MAY BE LITTLE BIT MORE PREVIOUSLY)
     Route: 030

REACTIONS (4)
  - Gait disturbance [Unknown]
  - Acne [Unknown]
  - Meningioma [Recovered/Resolved]
  - Blood disorder [Unknown]
